FAERS Safety Report 5869137-4 (Version None)
Quarter: 2008Q3

REPORT INFORMATION
  Report Type: 
  Country: None (occurrence: None)
  Receive Date: 20080903
  Receipt Date: 20080829
  Transmission Date: 20090109
  Serious: Yes (Hospitalization)
  Sender: FDA-Public Use
  Company Number: FR-WYE-G02081308

PATIENT
  Age: 7 Month
  Sex: Male

DRUGS (2)
  1. REFACTO [Suspect]
     Indication: FACTOR VIII DEFICIENCY
     Route: 042
     Dates: start: 20080801, end: 20080801
  2. REFACTO [Suspect]
     Route: 042
     Dates: start: 20080801

REACTIONS (2)
  - FACTOR VIII INHIBITION [None]
  - INFUSION SITE HAEMATOMA [None]
